FAERS Safety Report 7417596-8 (Version None)
Quarter: 2011Q2

REPORT INFORMATION
  Report Type: 
  Country: None (occurrence: None)
  Receive Date: 20110415
  Receipt Date: 20110411
  Transmission Date: 20111010
  Serious: Yes (Other)
  Sender: FDA-Public Use
  Company Number: US-GENZYME-FLUD-1001070

PATIENT
  Age: 38 Year

DRUGS (11)
  1. DECITABINE [Suspect]
     Dosage: 20 MG/M2, QDX5
     Route: 042
  2. THYMOGLOBULIN [Suspect]
     Indication: STEM CELL TRANSPLANT
  3. BUSULFAN [Suspect]
     Indication: MYELODYSPLASTIC SYNDROME
     Dosage: 130 MG/M2, QDX2
     Route: 042
  4. FLUDARA [Suspect]
     Indication: STEM CELL TRANSPLANT
  5. DECITABINE [Suspect]
     Indication: MYELODYSPLASTIC SYNDROME
     Dosage: 20 MG/M2, QDX5
     Route: 042
  6. FLUDARA [Suspect]
     Indication: MYELODYSPLASTIC SYNDROME
     Dosage: 40 MG/M2, QDX4
     Route: 065
  7. THYMOGLOBULIN [Suspect]
     Indication: MYELODYSPLASTIC SYNDROME
     Dosage: UNK
     Route: 065
  8. BUSULFAN [Suspect]
     Indication: STEM CELL TRANSPLANT
  9. METHOTREXATE [Concomitant]
     Indication: PROPHYLAXIS AGAINST GRAFT VERSUS HOST DISEASE
     Dosage: UNK
     Route: 065
  10. DECITABINE [Suspect]
     Dosage: 20 MG/M2, QDX5
     Route: 042
  11. TACROLIMUS [Concomitant]
     Indication: PROPHYLAXIS AGAINST GRAFT VERSUS HOST DISEASE
     Dosage: UNK
     Route: 065

REACTIONS (3)
  - HEPATOTOXICITY [None]
  - NAUSEA [None]
  - MUCOSAL INFLAMMATION [None]
